FAERS Safety Report 16869265 (Version 1)
Quarter: 2019Q3

REPORT INFORMATION
  Report Type: Report from Study
  Country: US (occurrence: US)
  Receive Date: 20190930
  Receipt Date: 20190930
  Transmission Date: 20191005
  Serious: Yes (Death)
  Sender: FDA-Public Use
  Company Number: US-ASTRAZENECA-2019SF37465

PATIENT
  Sex: Female

DRUGS (7)
  1. ATIVAN [Concomitant]
     Active Substance: LORAZEPAM
  2. TARCEVA [Concomitant]
     Active Substance: ERLOTINIB HYDROCHLORIDE
  3. TAGRISSO [Suspect]
     Active Substance: OSIMERTINIB
     Indication: LUNG NEOPLASM MALIGNANT
     Route: 048
     Dates: start: 20161222
  4. VITAMIN D2 [Concomitant]
     Active Substance: ERGOCALCIFEROL
  5. FOLIC ACID. [Concomitant]
     Active Substance: FOLIC ACID
  6. SINEMET [Concomitant]
     Active Substance: CARBIDOPA\LEVODOPA
  7. AZOR [Concomitant]
     Active Substance: AMLODIPINE BESYLATE\OLMESARTAN MEDOXOMIL

REACTIONS (1)
  - Death [Fatal]
